FAERS Safety Report 21179912 (Version 1)
Quarter: 2022Q3

REPORT INFORMATION
  Report Type: Spontaneous
  Country: US (occurrence: None)
  Receive Date: 20220805
  Receipt Date: 20220805
  Transmission Date: 20221027
  Serious: Yes (Other)
  Sender: FDA-Public Use
  Company Number: None

PATIENT
  Age: 46 Year
  Sex: Male

DRUGS (1)
  1. FAMOTIDINE [Suspect]
     Active Substance: FAMOTIDINE
     Dosage: 1 TAB EVERY DAY PO?
     Route: 048
     Dates: start: 20220507, end: 20220509

REACTIONS (2)
  - Electrocardiogram QT prolonged [None]
  - Palpitations [None]

NARRATIVE: CASE EVENT DATE: 20220509
